FAERS Safety Report 9806167 (Version 1)
Quarter: 2014Q1

REPORT INFORMATION
  Report Type: Spontaneous
  Country: FR (occurrence: None)
  Receive Date: 20140107
  Receipt Date: 20140107
  Transmission Date: 20141002
  Serious: Yes (Hospitalization)
  Sender: FDA-Public Use
  Company Number: AUR-APL-2013-10929

PATIENT
  Age: 60 Year
  Sex: Female

DRUGS (5)
  1. BISOPROLOL (BISOPROLOL) [Suspect]
     Indication: HYPERTENSION
     Route: 048
  2. ALTEISDUO [Suspect]
     Indication: HYPERTENSION
     Route: 048
     Dates: start: 20131003
  3. DOLIPRANE (PARACETAMOL) [Concomitant]
  4. PIASCLEDINE (PIAS) [Concomitant]
  5. TRANQUITAL (TRANQUITALZ) [Concomitant]

REACTIONS (10)
  - Presyncope [None]
  - Atrial fibrillation [None]
  - Hypokalaemia [None]
  - Loss of consciousness [None]
  - Fall [None]
  - Head injury [None]
  - Syncope [None]
  - Hot flush [None]
  - Pallor [None]
  - Blood pressure decreased [None]
